FAERS Safety Report 7557442-5 (Version None)
Quarter: 2011Q2

REPORT INFORMATION
  Report Type: 
  Country: None (occurrence: None)
  Receive Date: 20110616
  Receipt Date: 20110616
  Transmission Date: 20111010
  Serious: Yes (Hospitalization)
  Sender: FDA-Public Use
  Company Number: None

PATIENT
  Age: 84 Year
  Sex: Female
  Weight: 72 kg

DRUGS (4)
  1. OMEPRAZOLE [Concomitant]
  2. CALCIUM + VITAMIN D [Concomitant]
  3. WARFARIN SODIUM [Suspect]
     Indication: ATRIAL FIBRILLATION
     Dosage: PO
     Route: 048
  4. VERPAMIL HCL [Concomitant]

REACTIONS (3)
  - DIVERTICULITIS [None]
  - POLYP [None]
  - LOWER GASTROINTESTINAL HAEMORRHAGE [None]
